FAERS Safety Report 9102950 (Version 1)
Quarter: 2013Q1

REPORT INFORMATION
  Report Type: Spontaneous
  Country: NO (occurrence: NO)
  Receive Date: 20130218
  Receipt Date: 20130218
  Transmission Date: 20140127
  Serious: Yes (Hospitalization)
  Sender: FDA-Public Use
  Company Number: PHHY2012NO069150

PATIENT
  Age: 82 Year
  Sex: Female

DRUGS (10)
  1. ESIDREX [Suspect]
     Dosage: 25 MG, QD
     Route: 048
     Dates: end: 20120723
  2. METFORMIN [Suspect]
     Dosage: 500 MG, QD
     Dates: end: 20120723
  3. BURINEX [Suspect]
     Dosage: 1 MG, BID
     Route: 048
     Dates: end: 20120723
  4. SERETIDE [Concomitant]
     Indication: CHRONIC OBSTRUCTIVE PULMONARY DISEASE
     Route: 055
  5. SIMVASTATIN [Concomitant]
     Dosage: 20 MG, QD
     Route: 048
  6. DIGIMERCK [Concomitant]
     Dosage: 0.05 MG (EVERY MONDAY, TUESDAY, THURSDAY AND FRIDAY)
     Route: 048
  7. VENTOLINE [Concomitant]
     Route: 055
  8. SPIRIVA [Concomitant]
  9. MAREVAN [Concomitant]
     Route: 048
     Dates: end: 20120718
  10. DIGIMERCK PICO [Concomitant]
     Dosage: 0.05 MG (EVERY MONDAY, TUESDAY, THURSDAY AND FRIDAY), UNK
     Route: 048

REACTIONS (8)
  - Pneumonia [Recovering/Resolving]
  - Prerenal failure [Recovering/Resolving]
  - Nausea [Recovering/Resolving]
  - Vomiting [Recovering/Resolving]
  - Hypokalaemia [Recovering/Resolving]
  - Dehydration [Recovering/Resolving]
  - Constipation [Recovering/Resolving]
  - Decreased appetite [Unknown]
